FAERS Safety Report 6370420-7 (Version None)
Quarter: 2009Q3

REPORT INFORMATION
  Report Type: 
  Country: None (occurrence: None)
  Receive Date: 20090923
  Receipt Date: 20090918
  Transmission Date: 20100115
  Serious: Yes (Death)
  Sender: FDA-Public Use
  Company Number: US-NOVOPROD-290197

PATIENT
  Sex: Male
  Weight: 31.1 kg

DRUGS (22)
  1. NORDITROPIN [Suspect]
     Indication: GROWTH HORMONE DEFICIENCY
     Dosage: 1.8 MG, QD
     Route: 058
     Dates: start: 20061231, end: 20090728
  2. LISINOPRIL [Concomitant]
     Indication: DRUG USE FOR UNKNOWN INDICATION
     Dosage: 10 MG, QD
  3. CELLCEPT [Concomitant]
     Indication: DRUG USE FOR UNKNOWN INDICATION
     Dosage: 200 MG/ML, BID
  4. ASPIRIN [Concomitant]
     Indication: DRUG USE FOR UNKNOWN INDICATION
     Dosage: 81 MG, QD
  5. LIPITOR [Concomitant]
     Indication: DRUG USE FOR UNKNOWN INDICATION
     Dosage: 10 MG, QD
  6. PREDNISONE [Concomitant]
     Indication: DRUG USE FOR UNKNOWN INDICATION
     Dosage: 7.5 MG, QD
  7. FAMOTIDINE [Concomitant]
     Indication: DRUG USE FOR UNKNOWN INDICATION
     Dosage: 20 MG, BID
  8. LORATADINE [Concomitant]
     Indication: DRUG USE FOR UNKNOWN INDICATION
     Dosage: 10 MG, QD
  9. BACTRIM [Concomitant]
     Indication: DRUG USE FOR UNKNOWN INDICATION
     Dosage: 1 TAB, BID MON-WED-FRI
  10. MAGNESIUM OXIDE [Concomitant]
     Indication: DRUG USE FOR UNKNOWN INDICATION
     Dosage: 400 MG, BID
  11. RAPAMUNE [Concomitant]
     Indication: DRUG USE FOR UNKNOWN INDICATION
     Dosage: 2 MG, QD
  12. LEVOTHYROXINE SODIUM [Concomitant]
     Indication: DRUG USE FOR UNKNOWN INDICATION
     Dosage: 50 MG, QD
  13. FERROUS SULFATE TAB [Concomitant]
     Indication: DRUG USE FOR UNKNOWN INDICATION
     Dosage: 325 MG, BID
  14. POTASSIUM CITRATE [Concomitant]
     Indication: DRUG USE FOR UNKNOWN INDICATION
     Dosage: 1080 MG, BID
  15. SENNA S [Concomitant]
     Indication: DRUG USE FOR UNKNOWN INDICATION
     Dosage: 1 TAB, BID
  16. QVAR 40 [Concomitant]
     Indication: DRUG USE FOR UNKNOWN INDICATION
     Dosage: 2 PUFF, BID
  17. XOPENEX HFA [Concomitant]
     Indication: DRUG USE FOR UNKNOWN INDICATION
     Dosage: 2-4 PUFF, PRN
  18. RHINOCORT [Concomitant]
     Indication: DRUG USE FOR UNKNOWN INDICATION
     Dosage: 2 PUFF, PRN
  19. SYSTANE [Concomitant]
     Indication: DRUG USE FOR UNKNOWN INDICATION
     Dosage: 1 DROP, PRN
  20. BENZAMYCIN                         /00932901/ [Concomitant]
     Indication: SKIN PAPILLOMA
     Dosage: GEL, PRN
  21. PROCRIT                            /00909301/ [Concomitant]
     Indication: DRUG USE FOR UNKNOWN INDICATION
     Dosage: .1 ML, BIW
     Route: 058
  22. DIGOXIN [Concomitant]
     Dosage: .125 UNK, QD

REACTIONS (2)
  - AORTIC CALCIFICATION [None]
  - SUPRAVALVULAR AORTIC STENOSIS [None]
